FAERS Safety Report 20649778 (Version 1)
Quarter: 2022Q1

REPORT INFORMATION
  Report Type: Spontaneous
  Country: US (occurrence: US)
  Receive Date: 20220329
  Receipt Date: 20220329
  Transmission Date: 20220423
  Serious: No
  Sender: FDA-Public Use
  Company Number: US-PERRIGO-21US010075

PATIENT
  Sex: Female

DRUGS (1)
  1. ACETAMINOPHEN [Suspect]
     Active Substance: ACETAMINOPHEN
     Indication: Carpal tunnel syndrome
     Dosage: UNKNOWN, UNKNOWN
     Route: 048
     Dates: start: 202107, end: 202107

REACTIONS (6)
  - Drug hypersensitivity [Unknown]
  - Swelling [Unknown]
  - Rash [Unknown]
  - Erythema [Unknown]
  - Drug ineffective [Unknown]
  - Off label use [Unknown]

NARRATIVE: CASE EVENT DATE: 20210701
